FAERS Safety Report 11242535 (Version 1)
Quarter: 2015Q3

REPORT INFORMATION
  Report Type: Spontaneous
  Country: FI (occurrence: FI)
  Receive Date: 20150707
  Receipt Date: 20150707
  Transmission Date: 20151125
  Serious: Yes (Other)
  Sender: FDA-Public Use
  Company Number: FI-ACCORD-031996

PATIENT
  Age: 68 Year
  Sex: Male

DRUGS (12)
  1. ACCORD^S QUETIAPINE FUMARATE [Suspect]
     Active Substance: QUETIAPINE FUMARATE
     Indication: SCHIZOPHRENIA
     Dosage: STRENGTH: 100 MG
     Route: 048
  2. GEFILUS [Concomitant]
     Route: 048
  3. PROTAPHANE [Concomitant]
     Active Substance: INSULIN HUMAN
     Dosage: 100 IU/ML
     Route: 058
  4. TAMIFLU [Interacting]
     Active Substance: OSELTAMIVIR PHOSPHATE
     Indication: INFLUENZA
     Dosage: STRENGTH: 75 MG
     Route: 048
     Dates: start: 20150521, end: 20150526
  5. OXYNORM [Concomitant]
     Active Substance: OXYCODONE HYDROCHLORIDE
     Indication: PAIN
     Dosage: STRENGTH: 5 MG, 1X3
     Route: 048
  6. SOMAC [Concomitant]
     Active Substance: PANTOPRAZOLE SODIUM
     Dosage: STRENGTH: 40 MG
     Route: 048
  7. LACTULOSE. [Concomitant]
     Active Substance: LACTULOSE
     Dosage: 667 MG/ML
     Route: 048
  8. MAREVAN FORTE [Concomitant]
     Active Substance: WARFARIN SODIUM
     Dosage: STRENGTH: 5 MG
     Route: 048
  9. PARAMAX FORTE [Concomitant]
     Dosage: STRENGTH: 1000 MG, 1X3
     Route: 048
  10. METOPROLOL TARTRATE. [Concomitant]
     Active Substance: METOPROLOL TARTRATE
     Dosage: 1/2X1, STRENGTH: 95 MG
     Route: 048
  11. FURESIS [Concomitant]
     Active Substance: FUROSEMIDE
     Dosage: STRENGTH: 40 MG
     Route: 048
  12. KLEXANE [Concomitant]
     Active Substance: ENOXAPARIN
     Dosage: STRENGTH: 100 MG
     Route: 058

REACTIONS (3)
  - Drug level increased [Unknown]
  - Neutropenia [Recovered/Resolved]
  - Drug interaction [Unknown]

NARRATIVE: CASE EVENT DATE: 20150526
